FAERS Safety Report 9519465 (Version 1)
Quarter: 2013Q3

REPORT INFORMATION
  Report Type: Spontaneous
  Country: US (occurrence: None)
  Receive Date: 20130911
  Receipt Date: 20130911
  Transmission Date: 20140515
  Serious: Yes (Hospitalization)
  Sender: FDA-Public Use
  Company Number: None

PATIENT
  Age: 88 Year
  Sex: Female
  Weight: 56 kg

DRUGS (10)
  1. RIVAROXABAN [Suspect]
     Indication: DEEP VEIN THROMBOSIS
     Dosage: 1 TAB BID ORAL
     Route: 048
     Dates: start: 20130816, end: 20130830
  2. ASPIRIN [Concomitant]
  3. ARICEPT [Concomitant]
  4. FENOFIBRATE [Concomitant]
  5. SYNTHROID [Concomitant]
  6. NAMENDA [Concomitant]
  7. MIRTAZAPINE [Concomitant]
  8. ASMANEX [Concomitant]
  9. MULTIVITAMIN [Concomitant]
  10. KCL [Concomitant]

REACTIONS (1)
  - Pulmonary embolism [None]
